FAERS Safety Report 12811999 (Version 1)
Quarter: 2016Q4

REPORT INFORMATION
  Report Type: Spontaneous
  Country: US (occurrence: US)
  Receive Date: 20161005
  Receipt Date: 20161005
  Transmission Date: 20170207
  Serious: No
  Sender: FDA-Public Use
  Company Number: US-AMGEN-USASP2016071332

PATIENT
  Age: 74 Year
  Sex: Female

DRUGS (1)
  1. PROLIA [Suspect]
     Active Substance: DENOSUMAB
     Indication: OSTEOPOROSIS
     Dosage: UNK, UNK
     Route: 065
     Dates: start: 201605

REACTIONS (11)
  - Local swelling [Unknown]
  - Malaise [Not Recovered/Not Resolved]
  - Musculoskeletal pain [Unknown]
  - Fear [Unknown]
  - Ear pain [Unknown]
  - Pain in extremity [Unknown]
  - Pain in jaw [Recovered/Resolved]
  - Vaginal infection [Unknown]
  - Head discomfort [Unknown]
  - Headache [Unknown]
  - Insomnia [Recovering/Resolving]

NARRATIVE: CASE EVENT DATE: 201605
